FAERS Safety Report 11774517 (Version 2)
Quarter: 2015Q4

REPORT INFORMATION
  Report Type: Spontaneous
  Country: US (occurrence: US)
  Receive Date: 20151124
  Receipt Date: 20151124
  Transmission Date: 20160304
  Serious: Yes (Hospitalization)
  Sender: FDA-Public Use
  Company Number: US-MALLINCKRODT-T201501573

PATIENT
  Age: 54 Year
  Sex: Male

DRUGS (8)
  1. GRALISE [Concomitant]
     Active Substance: GABAPENTIN
  2. GABLOFEN [Suspect]
     Active Substance: BACLOFEN
     Indication: MUSCLE SPASTICITY
     Dosage: 843 MCG/DAY
     Route: 037
  3. PROVIGIL [Concomitant]
     Active Substance: MODAFINIL
  4. BACLOFEN. [Concomitant]
     Active Substance: BACLOFEN
  5. METHENAMINE [Concomitant]
     Active Substance: METHENAMINE
  6. OXYBUTYNIN [Concomitant]
     Active Substance: OXYBUTYNIN
  7. TIZANIDINE. [Concomitant]
     Active Substance: TIZANIDINE
  8. OMEPRAZOLE. [Concomitant]
     Active Substance: OMEPRAZOLE

REACTIONS (5)
  - Drug effect decreased [Recovered/Resolved]
  - Withdrawal syndrome [Recovered/Resolved]
  - Pyrexia [None]
  - Device issue [Unknown]
  - Decubitus ulcer [Unknown]

NARRATIVE: CASE EVENT DATE: 201411
